FAERS Safety Report 9500334 (Version 3)
Quarter: 2013Q4

REPORT INFORMATION
  Report Type: Spontaneous
  Country: US (occurrence: None)
  Receive Date: 20130107
  Receipt Date: 20131226
  Transmission Date: 20140711
  Serious: Yes (Other)
  Sender: FDA-Public Use
  Company Number: PHEH2012US017872

PATIENT
  Age: 53 Year
  Sex: Male

DRUGS (4)
  1. GILENYA (FTY) CAPSULE, 0.5MG [Suspect]
     Indication: MULTIPLE SCLEROSIS
     Route: 048
     Dates: start: 201111
  2. LISINOPRIL [Concomitant]
  3. ROPINIROL (ROPINIROLE HYDROCHLORIDE) [Concomitant]
  4. NUVIGIL (ARMODAFINIL) [Concomitant]

REACTIONS (1)
  - Macular oedema [None]
